FAERS Safety Report 15184100 (Version 16)
Quarter: 2024Q4

REPORT INFORMATION
  Report Type: Spontaneous
  Country: US (occurrence: US)
  Receive Date: 20180723
  Receipt Date: 20241023
  Transmission Date: 20250114
  Serious: No
  Sender: PFIZER
  Company Number: US-PFIZER INC-2015331180

PATIENT
  Age: 64 Year
  Sex: Male
  Weight: 99 kg

DRUGS (9)
  1. XELJANZ [Suspect]
     Active Substance: TOFACITINIB CITRATE
     Indication: Rheumatoid arthritis
     Dosage: 5 MG, 2X/DAY
     Route: 048
     Dates: start: 2014
  2. XELJANZ [Suspect]
     Active Substance: TOFACITINIB CITRATE
     Dosage: 5 MG, 2X/DAY
     Route: 048
  3. IBUPROFEN [Concomitant]
     Active Substance: IBUPROFEN
     Indication: Condition aggravated
     Dosage: 800 MG, 3X/DAY
  4. IBUPROFEN [Concomitant]
     Active Substance: IBUPROFEN
     Dosage: UNK, AS NEEDED
  5. TRAMADOL [Concomitant]
     Active Substance: TRAMADOL
     Indication: Pain
     Dosage: 50 MG, SIX A DAY IN 6 TO 8 HOUR INTERVALS
  6. TRAMADOL [Concomitant]
     Active Substance: TRAMADOL
     Indication: Condition aggravated
     Dosage: UNK, DAILY (4-6 TRAMADOL A DAY)
  7. TRAMADOL [Concomitant]
     Active Substance: TRAMADOL
     Dosage: UNK, AS NEEDED
  8. MOTRIN [Concomitant]
     Active Substance: IBUPROFEN
  9. DOXYCYCLINE [Concomitant]
     Active Substance: DOXYCYCLINE

REACTIONS (12)
  - Dysgraphia [Not Recovered/Not Resolved]
  - Joint range of motion decreased [Unknown]
  - Contusion [Recovering/Resolving]
  - Musculoskeletal disorder [Unknown]
  - Tendon disorder [Recovering/Resolving]
  - Feeling abnormal [Unknown]
  - Abdominal discomfort [Unknown]
  - Malaise [Unknown]
  - Therapeutic response unexpected [Unknown]
  - Condition aggravated [Unknown]
  - Laziness [Unknown]
  - Headache [Unknown]
